FAERS Safety Report 5204240-3 (Version None)
Quarter: 2007Q1

REPORT INFORMATION
  Report Type: 
  Country: None (occurrence: None)
  Receive Date: 20070110
  Receipt Date: 20060627
  Transmission Date: 20070707
  Serious: No
  Sender: FDA-Public Use
  Company Number: US-BRISTOL-MYERS SQUIBB COMPANY-13251996

PATIENT
  Age: 42 Year
  Sex: Female
  Weight: 67 kg

DRUGS (6)
  1. ABILIFY [Suspect]
     Indication: SCHIZOAFFECTIVE DISORDER
     Route: 048
     Dates: end: 20060217
  2. ADDERALL 10 [Concomitant]
  3. GEODON [Concomitant]
  4. VITAMIN E [Concomitant]
  5. ALLERGY MEDICATIONS [Concomitant]
  6. ABILIFY [Concomitant]

REACTIONS (3)
  - MIOSIS [None]
  - PAIN IN EXTREMITY [None]
  - PARAESTHESIA [None]
